FAERS Safety Report 9501912 (Version 1)
Quarter: 2013Q3

REPORT INFORMATION
  Report Type: Spontaneous
  Country: PL (occurrence: PL)
  Receive Date: 20130905
  Receipt Date: 20130905
  Transmission Date: 20140515
  Serious: Yes (Hospitalization, Other)
  Sender: FDA-Public Use
  Company Number: PL-WATSON-2013-15251

PATIENT
  Age: 31 Year
  Sex: Female

DRUGS (8)
  1. DIAZEPAM (UNKNOWN) [Suspect]
     Indication: SUICIDE ATTEMPT
     Dosage: 50 MG, SINGLE
     Route: 048
  2. DIAZEPAM (UNKNOWN) [Suspect]
     Indication: INSOMNIA
     Dosage: 2.5 MG, DAILY
     Route: 048
  3. DIAZEPAM (UNKNOWN) [Suspect]
     Dosage: 5 MG, DAILY
     Route: 048
  4. HYDROXYCARBAMIDE [Suspect]
     Indication: SUICIDE ATTEMPT
     Dosage: 7500 MG, SINGLE
     Route: 048
  5. HYDROXYCARBAMIDE [Suspect]
     Indication: ESSENTIAL THROMBOCYTHAEMIA
     Dosage: 500 MG, DAILY
     Route: 048
  6. ETHANOL [Suspect]
     Indication: SUICIDE ATTEMPT
     Dosage: UNK
     Route: 048
  7. ACETYLSALICYLIC ACID [Concomitant]
     Indication: ESSENTIAL THROMBOCYTHAEMIA
     Dosage: 75 MG, DAILY
     Route: 065
  8. OMEPRAZOLE [Concomitant]
     Indication: GASTROOESOPHAGEAL REFLUX DISEASE
     Dosage: UNK
     Route: 065

REACTIONS (3)
  - Depressed mood [Unknown]
  - Restlessness [Unknown]
  - Intentional overdose [Unknown]
